FAERS Safety Report 19807669 (Version 2)
Quarter: 2021Q3

REPORT INFORMATION
  Report Type: Spontaneous
  Country: BR (occurrence: BR)
  Receive Date: 20210908
  Receipt Date: 20210915
  Transmission Date: 20211014
  Serious: Yes (Other)
  Sender: FDA-Public Use
  Company Number: BR-ELI_LILLY_AND_COMPANY-BR202108012719

PATIENT
  Age: 82 Year
  Sex: Female

DRUGS (5)
  1. FORTEO [Suspect]
     Active Substance: TERIPARATIDE
     Dosage: UNK, UNKNOWN
     Route: 065
     Dates: end: 20210829
  2. PREDNISONE. [Suspect]
     Active Substance: PREDNISONE
     Dosage: 5 MG, UNKNOWN
     Route: 065
  3. FORTEO [Suspect]
     Active Substance: TERIPARATIDE
     Indication: OSTEOPOROSIS
     Dosage: UNK UNK, UNKNOWN
     Route: 065
     Dates: start: 20200930
  4. FORTEO [Suspect]
     Active Substance: TERIPARATIDE
     Dosage: 20 UG, UNKNOWN
     Route: 058
     Dates: start: 20201003
  5. PREDNISONE. [Suspect]
     Active Substance: PREDNISONE
     Indication: VESTIBULAR NEURONITIS
     Dosage: 10 MG, UNKNOWN
     Route: 065

REACTIONS (11)
  - Pelvic fracture [Unknown]
  - Tremor [Unknown]
  - Arthralgia [Unknown]
  - Pruritus [Recovering/Resolving]
  - Dizziness [Recovering/Resolving]
  - Depressed mood [Unknown]
  - Fall [Unknown]
  - Thrombosis [Unknown]
  - Feeling abnormal [Unknown]
  - Asthenia [Unknown]
  - Vestibular neuronitis [Unknown]

NARRATIVE: CASE EVENT DATE: 202010
